FAERS Safety Report 25046935 (Version 1)
Quarter: 2025Q1

REPORT INFORMATION
  Report Type: Spontaneous
  Country: TR (occurrence: TR)
  Receive Date: 20250306
  Receipt Date: 20250306
  Transmission Date: 20250408
  Serious: Yes (Other)
  Sender: SANDOZ
  Company Number: TR-002147023-NVSC2024TR114983

PATIENT
  Age: 14 Year
  Sex: Male

DRUGS (2)
  1. RITALIN [Suspect]
     Active Substance: METHYLPHENIDATE HYDROCHLORIDE
     Indication: Attention deficit hyperactivity disorder
     Dosage: 2 DOSAGE FORM, BID (2X2)
     Route: 065
  2. RITALIN [Suspect]
     Active Substance: METHYLPHENIDATE HYDROCHLORIDE
     Indication: Autism spectrum disorder

REACTIONS (3)
  - Seizure [Unknown]
  - Product supply issue [Unknown]
  - Off label use [Unknown]
